FAERS Safety Report 17648801 (Version 4)
Quarter: 2020Q3

REPORT INFORMATION
  Report Type: Report from Study
  Country: BR (occurrence: BR)
  Receive Date: 20200408
  Receipt Date: 20200717
  Transmission Date: 20201102
  Serious: Yes (Other)
  Sender: FDA-Public Use
  Company Number: BR-AMGEN-BRASP2020055642

PATIENT
  Age: 55 Year
  Sex: Male

DRUGS (8)
  1. ADINOS [Concomitant]
     Indication: DERMATITIS ACNEIFORM
     Dosage: UNK
  2. VECTIBIX [Suspect]
     Active Substance: PANITUMUMAB
     Indication: COLORECTAL CANCER METASTATIC
     Dosage: UNK, EVERY 15 DAYS
     Route: 065
     Dates: start: 2014, end: 202001
  3. GLICLAZIDA [Concomitant]
     Active Substance: GLICLAZIDE
     Indication: DIABETES MELLITUS
     Dosage: 30 MILLIGRAM, QD
  4. VECTIBIX [Suspect]
     Active Substance: PANITUMUMAB
     Indication: RECTAL CANCER
  5. HIDROCLOROTIAZIDA [Concomitant]
     Active Substance: HYDROCHLOROTHIAZIDE
     Indication: HYPERTENSION
     Dosage: 25 MILLIGRAM, QD
  6. DOXICICLINA [DOXYCYCLINE] [Concomitant]
     Indication: DERMATITIS ACNEIFORM
     Dosage: 100 MILLIGRAM, BID
  7. LOSARTAN. [Concomitant]
     Active Substance: LOSARTAN
     Indication: HYPERTENSION
     Dosage: 50 MILLIGRAM, QD
  8. VECTIBIX [Suspect]
     Active Substance: PANITUMUMAB
     Indication: GASTROINTESTINAL CARCINOMA
     Dosage: UNK, EVERY 15 DAYS
     Route: 065
     Dates: start: 202003

REACTIONS (4)
  - Colorectal cancer metastatic [Not Recovered/Not Resolved]
  - Fatigue [Unknown]
  - Diabetes mellitus [Recovering/Resolving]
  - Dermatitis acneiform [Recovering/Resolving]

NARRATIVE: CASE EVENT DATE: 2018
